FAERS Safety Report 9685651 (Version 1)
Quarter: 2013Q4

REPORT INFORMATION
  Report Type: Spontaneous
  Country: US (occurrence: US)
  Receive Date: 20131113
  Receipt Date: 20131113
  Transmission Date: 20140711
  Serious: No
  Sender: FDA-Public Use
  Company Number: US-GLAXOSMITHKLINE-A1038296A

PATIENT
  Age: 80 Year
  Sex: Female

DRUGS (4)
  1. COREG [Suspect]
     Indication: BLOOD PRESSURE
     Route: 065
  2. CARVEDILOL [Suspect]
     Indication: BLOOD PRESSURE
     Route: 065
  3. BLOOD PRESSURE MEDICINES [Suspect]
     Indication: BLOOD PRESSURE
     Route: 065
  4. MICARDIS [Suspect]
     Indication: BLOOD PRESSURE
     Dosage: 60MG PER DAY
     Route: 065

REACTIONS (8)
  - Performance status decreased [Unknown]
  - Thyroid disorder [Unknown]
  - Blood pressure increased [Unknown]
  - Dizziness [Unknown]
  - Lethargy [Unknown]
  - Nausea [Unknown]
  - Quality of life decreased [Unknown]
  - Drug ineffective [Unknown]
